FAERS Safety Report 5409046-8 (Version None)
Quarter: 2007Q3

REPORT INFORMATION
  Report Type: 
  Country: None (occurrence: None)
  Receive Date: 20070808
  Receipt Date: 20070730
  Transmission Date: 20080115
  Serious: Yes (Hospitalization)
  Sender: FDA-Public Use
  Company Number: JP-ABBOTT-07P-087-0375047-00

PATIENT
  Sex: Male

DRUGS (11)
  1. SEVOFLURANE [Suspect]
     Indication: ANAESTHESIA
     Route: 055
     Dates: start: 20070508, end: 20070508
  2. SEVOFLURANE [Suspect]
     Indication: SPINAL OSTEOARTHRITIS
  3. SEVOFLURANE [Suspect]
     Indication: SURGERY
  4. THIAMYLAL SODIUM [Concomitant]
     Indication: SURGERY
     Route: 042
     Dates: start: 20070508, end: 20070508
  5. VECURONIUM BROMIDE [Concomitant]
     Indication: SURGERY
     Route: 042
     Dates: start: 20070508, end: 20070508
  6. FENTANYL CITRATE [Concomitant]
     Indication: SURGERY
     Route: 042
     Dates: start: 20070508, end: 20070508
  7. NEOSTIGMINE METILSULFATE [Concomitant]
     Indication: DRUG USE FOR UNKNOWN INDICATION
     Route: 042
     Dates: start: 20070508, end: 20070508
  8. ATROPINE SULFATE [Concomitant]
     Indication: DRUG USE FOR UNKNOWN INDICATION
     Route: 042
     Dates: start: 20070508, end: 20070508
  9. LAFUTIDINE [Concomitant]
     Indication: DRUG USE FOR UNKNOWN INDICATION
     Route: 048
     Dates: start: 20070508, end: 20070508
  10. DIAZEPAM [Concomitant]
     Indication: DRUG USE FOR UNKNOWN INDICATION
     Route: 048
     Dates: start: 20070508, end: 20070508
  11. CEFAZOLIN SODIUM [Concomitant]
     Indication: DRUG USE FOR UNKNOWN INDICATION
     Dates: start: 20070508, end: 20070510

REACTIONS (1)
  - LIVER DISORDER [None]
